FAERS Safety Report 6689072-1 (Version None)
Quarter: 2010Q2

REPORT INFORMATION
  Report Type: 
  Country: None (occurrence: None)
  Receive Date: 20100420
  Receipt Date: 20100402
  Transmission Date: 20101027
  Serious: Yes (Death, Hospitalization, Other)
  Sender: FDA-Public Use
  Company Number: US-ROCHE-676124

PATIENT
  Age: 36 Year
  Sex: Female
  Weight: 63.5 kg

DRUGS (2)
  1. BEVACIZUMAB [Suspect]
     Dosage: LAST DOSE: 13 NOV 2009, CYCLE 1, DAY 15, FREQUENCY: OVER 30-90MINS ON DAY1,15 AND 29, CYCLE 42 DAYS
     Route: 042
     Dates: start: 20091030
  2. SUNITINIB MALATE [Suspect]
     Dosage: LAST DOSE: 21 NOV 2009, CYCLE 1, DAY 23, FREQUENCY: ONCE DAILY ON DAYS 1-28
     Route: 048
     Dates: start: 20091030

REACTIONS (28)
  - ACUTE MYOCARDIAL INFARCTION [None]
  - ADRENAL CARCINOMA [None]
  - ATRIOVENTRICULAR BLOCK [None]
  - BONE MARROW FAILURE [None]
  - CARDIAC ARREST [None]
  - CARDIOGENIC SHOCK [None]
  - CHEST PAIN [None]
  - DEATH [None]
  - GENERAL PHYSICAL HEALTH DETERIORATION [None]
  - HAEMOGLOBIN DECREASED [None]
  - HEPATIC STEATOSIS [None]
  - HYPOTENSION [None]
  - HYPOXIA [None]
  - LEFT VENTRICULAR HYPERTROPHY [None]
  - METABOLIC ACIDOSIS [None]
  - MULTI-ORGAN FAILURE [None]
  - NEUTROPENIA [None]
  - OEDEMA PERIPHERAL [None]
  - PANCYTOPENIA [None]
  - PERICARDIAL EFFUSION [None]
  - PLATELET COUNT DECREASED [None]
  - PULMONARY HYPERTENSION [None]
  - PULMONARY THROMBOSIS [None]
  - RENAL FAILURE [None]
  - RESPIRATORY ACIDOSIS [None]
  - RESPIRATORY FAILURE [None]
  - SEPTIC SHOCK [None]
  - SOMNOLENCE [None]
